FAERS Safety Report 9587422 (Version 3)
Quarter: 2013Q4

REPORT INFORMATION
  Report Type: Report from Study
  Country: US (occurrence: US)
  Receive Date: 20131003
  Receipt Date: 20131105
  Transmission Date: 20140711
  Serious: No
  Sender: FDA-Public Use
  Company Number: PHEH2013US017636

PATIENT
  Age: 58 Year
  Sex: Female
  Weight: 91.61 kg

DRUGS (1)
  1. GILENYA [Suspect]
     Indication: MULTIPLE SCLEROSIS
     Dosage: 0.5 MG, QD
     Route: 048
     Dates: start: 20110406

REACTIONS (4)
  - Cystitis interstitial [Recovering/Resolving]
  - Bladder disorder [Recovering/Resolving]
  - Ear pain [Recovered/Resolved]
  - Dysphagia [Recovered/Resolved]
